FAERS Safety Report 7317221-0 (Version None)
Quarter: 2011Q1

REPORT INFORMATION
  Report Type: 
  Country: None (occurrence: None)
  Receive Date: 20110226
  Receipt Date: 20101008
  Transmission Date: 20110831
  Serious: Yes (Other)
  Sender: FDA-Public Use
  Company Number: US-ALLERGAN-1013008US

PATIENT
  Sex: Male

DRUGS (2)
  1. BOTOXA? [Suspect]
     Indication: MUSCLE SPASTICITY
     Dosage: UNK UNITS
     Route: 030
     Dates: start: 20100601, end: 20100601
  2. BOTOXA? [Suspect]
     Dosage: UNK UNITS
     Route: 030
     Dates: start: 20100901, end: 20100901

REACTIONS (1)
  - CONVULSION [None]
